FAERS Safety Report 23354521 (Version 1)
Quarter: 2024Q1

REPORT INFORMATION
  Report Type: Spontaneous
  Country: CA (occurrence: None)
  Receive Date: 20240101
  Receipt Date: 20240101
  Transmission Date: 20240410
  Serious: Yes (Death)
  Sender: FDA-Public Use
  Company Number: CA-ROCHE-3482407

PATIENT

DRUGS (1)
  1. RITUXIMAB [Suspect]
     Active Substance: RITUXIMAB
     Indication: Myasthenia gravis
     Route: 065

REACTIONS (4)
  - Drug ineffective for unapproved indication [Fatal]
  - Off label use [Fatal]
  - Pneumonia [Fatal]
  - Respiratory failure [Fatal]
